FAERS Safety Report 7460069-7 (Version None)
Quarter: 2011Q2

REPORT INFORMATION
  Report Type: 
  Country: None (occurrence: None)
  Receive Date: 20110505
  Receipt Date: 20110422
  Transmission Date: 20111010
  Serious: Yes (Other)
  Sender: FDA-Public Use
  Company Number: PHHY2011US05419

PATIENT
  Sex: Male
  Weight: 64 kg

DRUGS (3)
  1. EXJADE [Suspect]
     Dosage: 500 MG, QD
     Route: 048
     Dates: start: 20110106, end: 20110316
  2. HYDREA [Concomitant]
     Indication: MYELOFIBROSIS
     Dosage: 500 MG, UNK
     Dates: start: 20091104
  3. EXJADE [Suspect]
     Indication: MYELOFIBROSIS
     Dosage: 1500 MG, DAILY
     Route: 048
     Dates: start: 20101214, end: 20101228

REACTIONS (8)
  - DEHYDRATION [None]
  - HEPATIC ENZYME INCREASED [None]
  - DIARRHOEA [None]
  - DRUG INEFFECTIVE [None]
  - URINARY INCONTINENCE [None]
  - POLLAKIURIA [None]
  - ASTHENIA [None]
  - MALAISE [None]
